FAERS Safety Report 9058630 (Version 1)
Quarter: 2013Q1

REPORT INFORMATION
  Report Type: Spontaneous
  Country: NL (occurrence: NL)
  Receive Date: 20130211
  Receipt Date: 20130211
  Transmission Date: 20140127
  Serious: Yes (Life-Threatening, Hospitalization)
  Sender: FDA-Public Use
  Company Number: NL-NOVOPROD-369898

PATIENT
  Age: 49 Year
  Sex: Male

DRUGS (6)
  1. VICTOZA [Suspect]
     Indication: TYPE 2 DIABETES MELLITUS
     Dosage: UNK
     Route: 058
     Dates: start: 20120314, end: 20120320
  2. GLIMEPIRIDE [Suspect]
     Indication: TYPE 2 DIABETES MELLITUS
     Dosage: 2 TAB, QD
     Route: 048
     Dates: start: 20120314, end: 20120320
  3. ACTRAPID PENFILL [Concomitant]
     Indication: TYPE 2 DIABETES MELLITUS
     Route: 058
  4. METFORMIN [Concomitant]
     Indication: TYPE 2 DIABETES MELLITUS
     Dosage: TAB, BID
     Route: 048
  5. FLUVOXAMINE [Concomitant]
     Dosage: UNK
     Route: 048
  6. TERBINAFINE [Concomitant]
     Dosage: 250 TAB, QD
     Route: 048

REACTIONS (1)
  - Haemolytic anaemia [Recovered/Resolved]
